FAERS Safety Report 13650933 (Version 3)
Quarter: 2017Q3

REPORT INFORMATION
  Report Type: Spontaneous
  Country: IT (occurrence: IT)
  Receive Date: 20170614
  Receipt Date: 20170810
  Transmission Date: 20171127
  Serious: Yes (Hospitalization)
  Sender: FDA-Public Use
  Company Number: IT-IBIGEN-2017.02744

PATIENT
  Age: 49 Year
  Sex: Male

DRUGS (4)
  1. PIPERACILLIN/TAZOBACTAM [Suspect]
     Active Substance: PIPERACILLIN SODIUM\TAZOBACTAM SODIUM
     Dosage: 13.5 G DAILY
     Route: 042
     Dates: start: 20170425, end: 20170508
  2. CEFIXIME. [Suspect]
     Active Substance: CEFIXIME
     Dosage: 0.4 G DAILY
     Route: 048
     Dates: start: 20170509, end: 20170516
  3. LEVOFLOXACIN. [Suspect]
     Active Substance: LEVOFLOXACIN
     Dosage: 500 MG DAILY
     Dates: start: 20170509, end: 20170516
  4. ESOMEPRAZOLE [Concomitant]
     Active Substance: ESOMEPRAZOLE

REACTIONS (3)
  - Erythema [Recovered/Resolved]
  - Urticaria [Recovered/Resolved]
  - Tendonitis [Recovered/Resolved]

NARRATIVE: CASE EVENT DATE: 20170511
